FAERS Safety Report 9425050 (Version 1)
Quarter: 2013Q3

REPORT INFORMATION
  Report Type: Spontaneous
  Country: GB (occurrence: GB)
  Receive Date: 20130729
  Receipt Date: 20130729
  Transmission Date: 20140515
  Serious: Yes (Hospitalization)
  Sender: FDA-Public Use
  Company Number: GB-TEVA-420195ISR

PATIENT
  Age: 86 Year
  Sex: Male

DRUGS (23)
  1. VINCRISTINE [Suspect]
     Indication: B-CELL LYMPHOMA
     Route: 042
     Dates: start: 20130522
  2. CYCLOPHOSPHAMIDE [Suspect]
     Indication: B-CELL LYMPHOMA
     Route: 042
     Dates: start: 20130522
  3. PREDNISONE [Suspect]
     Indication: B-CELL LYMPHOMA
     Dosage: 50 (UNIT NOT REPORTED)
     Route: 048
     Dates: start: 20130522, end: 20130525
  4. RITUXIMAB [Concomitant]
     Indication: B-CELL LYMPHOMA
     Route: 042
     Dates: start: 20130320
  5. SENNA [Concomitant]
     Indication: CONSTIPATION
     Dates: start: 20130325
  6. DALTEPARIN [Concomitant]
     Indication: PRODUCT USED FOR UNKNOWN INDICATION
     Dates: start: 20130525, end: 20130525
  7. CARBOCISTEINE [Concomitant]
     Indication: CHRONIC OBSTRUCTIVE PULMONARY DISEASE
     Dates: start: 20120113
  8. LERCANIDIPINE HYDROCHLORIDE [Concomitant]
     Indication: HYPERTENSION
     Dates: start: 20111024
  9. MIRAPEXIN [Concomitant]
     Indication: RESTLESS LEGS SYNDROME
     Dates: start: 20111005
  10. QUININE SULFATE [Concomitant]
     Indication: MUSCLE SPASMS
     Dates: start: 20111024
  11. BECLOMETHASONE DIPROPIONATE [Concomitant]
     Indication: UPPER-AIRWAY COUGH SYNDROME
     Dates: start: 20111005
  12. DOUBLEBASE [Concomitant]
     Indication: DRY SKIN
     Dates: start: 20111019
  13. MOMETASONE FUROATE [Concomitant]
     Indication: RASH
     Dates: start: 20110617
  14. TIOTROPIUM BROMIDE [Concomitant]
     Indication: CHRONIC OBSTRUCTIVE PULMONARY DISEASE
     Dates: start: 20111005
  15. BUDESONIDE [Concomitant]
     Indication: CHRONIC OBSTRUCTIVE PULMONARY DISEASE
     Dates: start: 20111019
  16. RANITIDINE [Concomitant]
     Indication: PRODUCT USED FOR UNKNOWN INDICATION
     Dates: start: 20130501
  17. RANITIDINE [Concomitant]
     Dates: start: 20130522, end: 20130529
  18. CLARITHROMYCIN [Concomitant]
     Indication: CHRONIC OBSTRUCTIVE PULMONARY DISEASE
     Dates: start: 20120701
  19. DOMPERIDONE [Concomitant]
     Indication: VOMITING
     Dates: start: 20130320
  20. ONDANSETRON [Concomitant]
     Indication: VOMITING
     Dates: start: 20130410
  21. PARACETAMOL [Concomitant]
     Indication: PREMEDICATION
     Dates: start: 20130410
  22. CHLORPHENIRAMINE MALEATE [Concomitant]
     Indication: PREMEDICATION
     Dates: start: 20130410
  23. RAMIPRIL [Concomitant]
     Indication: HYPERTENSION
     Dates: start: 20111024

REACTIONS (2)
  - Lower respiratory tract infection [Not Recovered/Not Resolved]
  - Febrile neutropenia [Unknown]
